FAERS Safety Report 9505498 (Version 1)
Quarter: 2013Q1

REPORT INFORMATION
  Report Type: Spontaneous
  Country: US (occurrence: None)
  Receive Date: 20130225
  Receipt Date: 20130225
  Transmission Date: 20140127
  Serious: No
  Sender: FDA-Public Use
  Company Number: 367976

PATIENT
  Sex: Male

DRUGS (2)
  1. VICTOZA [Suspect]
     Indication: TYPE 2 DIABETES MELLITUS
     Route: 058
     Dates: start: 20121220
  2. METOPROLOL (METOPROLOL) [Concomitant]

REACTIONS (5)
  - Product colour issue [None]
  - Malaise [None]
  - Dizziness [None]
  - Palpitations [None]
  - Thinking abnormal [None]
